FAERS Safety Report 10440907 (Version 2)
Quarter: 2014Q3

REPORT INFORMATION
  Report Type: Spontaneous
  Country: US (occurrence: US)
  Receive Date: 20140909
  Receipt Date: 20140909
  Transmission Date: 20150326
  Serious: Yes (Other)
  Sender: FDA-Public Use
  Company Number: US-AMGEN-USASP2014054014

PATIENT
  Age: 66 Year
  Sex: Female
  Weight: 70.3 kg

DRUGS (8)
  1. ACETAMINOPHEN. [Concomitant]
     Active Substance: ACETAMINOPHEN
     Dosage: 650 MG, BID
     Route: 048
  2. COENZYME Q10 [Concomitant]
     Active Substance: UBIDECARENONE
     Dosage: 200 MG, QD
  3. VITAMIN D3 [Concomitant]
     Active Substance: CHOLECALCIFEROL
     Dosage: 1000 IU, QD
     Route: 048
  4. ECOTRIN [Concomitant]
     Active Substance: ASPIRIN
     Dosage: 81 MG, QD
     Route: 048
  5. PROLIA [Suspect]
     Active Substance: DENOSUMAB
     Indication: OSTEOPOROSIS POSTMENOPAUSAL
     Dosage: 60 MG, Q6MO
     Route: 058
     Dates: start: 20140507
  6. NIACIN. [Concomitant]
     Active Substance: NIACIN
  7. CALTRATE                           /00944201/ [Concomitant]
     Dosage: 600 MG, BID
     Route: 048
  8. WELCHOL [Concomitant]
     Active Substance: COLESEVELAM HYDROCHLORIDE

REACTIONS (24)
  - Ligament rupture [Unknown]
  - Spinal pain [Recovered/Resolved]
  - Tendonitis [Recovering/Resolving]
  - Vitamin B12 decreased [Unknown]
  - Oedema [Recovering/Resolving]
  - Gait disturbance [Unknown]
  - Patellofemoral pain syndrome [Recovering/Resolving]
  - Chest pain [Recovered/Resolved]
  - Musculoskeletal stiffness [Recovering/Resolving]
  - Pain in extremity [Recovering/Resolving]
  - Arthralgia [Unknown]
  - Paraesthesia [Recovering/Resolving]
  - Weight bearing difficulty [Recovering/Resolving]
  - Pain [Recovering/Resolving]
  - Arthropathy [Recovered/Resolved]
  - Neck pain [Recovered/Resolved]
  - Constipation [Recovering/Resolving]
  - Osteoarthritis [Unknown]
  - Neuropathy peripheral [Unknown]
  - Back pain [Recovering/Resolving]
  - Feeling hot [Unknown]
  - Intervertebral disc annular tear [Unknown]
  - Peripheral swelling [Unknown]
  - Musculoskeletal pain [Recovering/Resolving]

NARRATIVE: CASE EVENT DATE: 20140523
